FAERS Safety Report 7162015-2 (Version None)
Quarter: 2010Q4

REPORT INFORMATION
  Report Type: 
  Country: None (occurrence: None)
  Receive Date: 20101215
  Receipt Date: 20100825
  Transmission Date: 20110411
  Serious: Yes (Other)
  Sender: FDA-Public Use
  Company Number: JP-PFIZER INC-2010088097

PATIENT
  Age: 70 Year
  Sex: Female

DRUGS (6)
  1. LYRICA [Suspect]
     Dosage: 75 MG, 2X/DAY
     Route: 048
     Dates: start: 20100628, end: 20100629
  2. TRANDATE [Concomitant]
     Dosage: 50 MG/DAILY
     Route: 048
  3. ROCORNAL [Concomitant]
     Dosage: 100 MG, DAILY
     Route: 048
  4. SOLANAX [Concomitant]
     Dosage: 0.4 MG, DAILY
     Route: 048
  5. CONIEL [Concomitant]
     Dosage: 2 MG, DAILY
     Route: 048
  6. CARTEOLOL HYDROCHLORIDE [Concomitant]
     Dosage: UNK
     Route: 047

REACTIONS (1)
  - BLOOD PRESSURE INCREASED [None]
